FAERS Safety Report 10257445 (Version 1)
Quarter: 2014Q2

REPORT INFORMATION
  Report Type: Spontaneous
  Country: US (occurrence: None)
  Receive Date: 20140623
  Receipt Date: 20140623
  Transmission Date: 20141212
  Serious: No
  Sender: FDA-Public Use
  Company Number: None

PATIENT
  Age: 34 Year
  Sex: Female
  Weight: 90.72 kg

DRUGS (4)
  1. OXYCODONE/ACETAMINOPHEN 10/325 ACTAVIS [Suspect]
     Indication: PAIN
     Dosage: 10/325 1 PILL 3 TIMES A DAY  THREE TIMES DAILY TAKEN BY MOUTH
     Route: 048
  2. OXYCODONE/ACETAMINOPHEN 10/325 ACTAVIS [Suspect]
     Indication: INTERVERTEBRAL DISC DEGENERATION
     Dosage: 10/325 1 PILL 3 TIMES A DAY  THREE TIMES DAILY TAKEN BY MOUTH
     Route: 048
  3. OXYCODONE/ACETAMINOPHEN 10/325 ACTAVIS [Suspect]
     Indication: CARPAL TUNNEL SYNDROME
     Dosage: 10/325 1 PILL 3 TIMES A DAY  THREE TIMES DAILY TAKEN BY MOUTH
     Route: 048
  4. OXYCODONE/ACETAMINOPHEN 10/325 ACTAVIS [Suspect]
     Indication: EXOSTOSIS
     Dosage: 10/325 1 PILL 3 TIMES A DAY  THREE TIMES DAILY TAKEN BY MOUTH
     Route: 048

REACTIONS (6)
  - Abdominal distension [None]
  - Vomiting [None]
  - Product substitution issue [None]
  - No therapeutic response [None]
  - Gastric disorder [None]
  - Feeling abnormal [None]
